FAERS Safety Report 8463073-5 (Version None)
Quarter: 2012Q2

REPORT INFORMATION
  Report Type: 
  Country: None (occurrence: None)
  Receive Date: 20120625
  Receipt Date: 20120619
  Transmission Date: 20120825
  Serious: No
  Sender: FDA-Public Use
  Company Number: US-PFIZER INC-2012148642

PATIENT
  Sex: Female
  Weight: 77.098 kg

DRUGS (8)
  1. ZOLOFT [Concomitant]
     Indication: DEPRESSION
     Dosage: 100 MG, DAILY
  2. GLUCOTROL [Suspect]
     Indication: DIABETES MELLITUS
     Dosage: 20 MG, DAILY
     Route: 048
  3. METFORMIN HCL [Suspect]
     Dosage: 2000 MG,DAILY
     Route: 048
  4. ZOLOFT [Concomitant]
     Dosage: 100 MG, 1X/DAY
  5. LYRICA [Suspect]
     Indication: DIABETIC NEUROPATHY
     Dosage: 50 MG, 3X/DAY
     Dates: end: 20120617
  6. CLONAZEPAM [Suspect]
     Indication: ANXIETY
  7. ACCUPRIL [Concomitant]
     Indication: HYPERTENSION
     Dosage: 20 MG, DAILY
  8. CLONAZEPAM [Suspect]
     Indication: INSOMNIA
     Dosage: 1 MG, DAILY

REACTIONS (5)
  - PAIN IN EXTREMITY [None]
  - INSOMNIA [None]
  - BLOOD CHOLESTEROL INCREASED [None]
  - BURNING SENSATION [None]
  - LIVER DISORDER [None]
